FAERS Safety Report 10920702 (Version 1)
Quarter: 2015Q1

REPORT INFORMATION
  Report Type: Report from Study
  Country: AU (occurrence: AU)
  Receive Date: 20150317
  Receipt Date: 20150317
  Transmission Date: 20150721
  Serious: Yes (Other)
  Sender: FDA-Public Use
  Company Number: AU-BAYER-2015-021403

PATIENT
  Age: 43 Year
  Sex: Female

DRUGS (2)
  1. BETAFERON [Suspect]
     Active Substance: INTERFERON BETA-1B
     Indication: MULTIPLE SCLEROSIS
     Dosage: 250 MCG/ML, QOD
     Route: 058
     Dates: start: 20150203
  2. BETAFERON [Suspect]
     Active Substance: INTERFERON BETA-1B
     Indication: MULTIPLE SCLEROSIS
     Dosage: 500 MCG/ML, QOD
     Route: 058
     Dates: end: 20150219

REACTIONS (12)
  - Pyrexia [Recovering/Resolving]
  - Headache [Recovering/Resolving]
  - Dyspnoea [Unknown]
  - Restlessness [Unknown]
  - Feeling abnormal [Unknown]
  - Malaise [Unknown]
  - Injection site rash [Not Recovered/Not Resolved]
  - Tachycardia [Unknown]
  - Asthmatic crisis [Unknown]
  - Pelvic pain [Recovering/Resolving]
  - Influenza like illness [Recovering/Resolving]
  - Back pain [Recovering/Resolving]

NARRATIVE: CASE EVENT DATE: 20150203
